FAERS Safety Report 7414719-1 (Version None)
Quarter: 2011Q2

REPORT INFORMATION
  Report Type: 
  Country: None (occurrence: None)
  Receive Date: 20110414
  Receipt Date: 20091119
  Transmission Date: 20111010
  Serious: Yes (Death, Hospitalization, Other)
  Sender: FDA-Public Use
  Company Number: US-BAYER-200940058NA

PATIENT
  Age: 37 Year
  Sex: Male
  Weight: 138 kg

DRUGS (13)
  1. LEVOPHED [Concomitant]
     Dosage: UNK
     Route: 042
     Dates: start: 20020913, end: 20020913
  2. ANCEF [Concomitant]
     Dosage: 2 G, UNK
     Route: 042
     Dates: start: 20020913, end: 20020913
  3. LASIX [Concomitant]
     Dosage: 400 MG, UNK
     Route: 042
     Dates: start: 20020913, end: 20020913
  4. PRINIVIL [Concomitant]
     Indication: HYPERTENSION
     Dosage: 20 MG, UNK
     Route: 048
     Dates: start: 20001228
  5. HEPARIN [Concomitant]
     Dosage: 10,000 UNITS
     Route: 042
     Dates: start: 20020913, end: 20020913
  6. EPINEPHRINE [Concomitant]
     Dosage: UNK
     Route: 042
     Dates: start: 20020913, end: 20020913
  7. TRASYLOL [Suspect]
     Indication: ANEURYSM REPAIR
     Dosage: 200CC
     Route: 042
     Dates: start: 20020913, end: 20020913
  8. PRAVACHOL [Concomitant]
     Route: 048
  9. NITROGLYCERIN [Concomitant]
     Dosage: UNK
     Route: 042
     Dates: start: 20020913
  10. DOBUTAMINE HCL [Concomitant]
     Dosage: UNK
     Route: 042
     Dates: start: 20020913, end: 20020913
  11. CLONIDINE [Concomitant]
     Dosage: 0.2 MG, UNK
     Route: 048
     Dates: start: 19960920
  12. PAVULON [Concomitant]
     Dosage: 10 MG, UNK
     Route: 042
     Dates: start: 20020913, end: 20020913
  13. VERSED [Concomitant]
     Dosage: 20 MG, UNK
     Route: 042
     Dates: start: 20020913, end: 20020913

REACTIONS (7)
  - DEATH [None]
  - RENAL FAILURE ACUTE [None]
  - PAIN [None]
  - RENAL INJURY [None]
  - UNEVALUABLE EVENT [None]
  - INJURY [None]
  - RENAL FAILURE [None]
